FAERS Safety Report 18683833 (Version 2)
Quarter: 2021Q1

REPORT INFORMATION
  Report Type: Spontaneous
  Country: JP (occurrence: JP)
  Receive Date: 20201230
  Receipt Date: 20210209
  Transmission Date: 20210419
  Serious: Yes (Hospitalization)
  Sender: FDA-Public Use
  Company Number: JP-MYLANLABS-2020M1105553

PATIENT
  Age: 63 Year
  Sex: Male
  Weight: 63 kg

DRUGS (10)
  1. PREDNISOLONE. [Suspect]
     Active Substance: PREDNISOLONE
     Indication: IMMUNOSUPPRESSANT DRUG THERAPY
     Dosage: 15 MILLIGRAM, FOLLOWING IMPROVEMENT IN MYCOLICIBACTERIUM FORTUITUM INFECTION
     Route: 065
  2. LEVOFLOXACIN. [Suspect]
     Active Substance: LEVOFLOXACIN
     Indication: PNEUMONIA
  3. CLARITH [Suspect]
     Active Substance: CLARITHROMYCIN
     Indication: PNEUMONIA
     Route: 065
  4. CLARITH [Suspect]
     Active Substance: CLARITHROMYCIN
     Indication: MYCOBACTERIUM FORTUITUM INFECTION
  5. PREDNISOLONE. [Suspect]
     Active Substance: PREDNISOLONE
     Dosage: 40 MILLIGRAM, ONE MONTH AFTER THE COMPLETION OF THE ANTIBIOTIC TREATMENT
     Route: 065
  6. LEVOFLOXACIN. [Suspect]
     Active Substance: LEVOFLOXACIN
     Indication: MYCOBACTERIUM FORTUITUM INFECTION
     Route: 065
  7. TACROLIMUS. [Suspect]
     Active Substance: TACROLIMUS
     Indication: RHEUMATOID ARTHRITIS
     Route: 065
  8. TACROLIMUS. [Suspect]
     Active Substance: TACROLIMUS
     Indication: IMMUNOSUPPRESSANT DRUG THERAPY
  9. PREDNISOLONE. [Suspect]
     Active Substance: PREDNISOLONE
     Indication: COLLAGEN-VASCULAR DISEASE
     Dosage: 30 MILLIGRAM
     Route: 065
  10. SALAZOSULFAPYRIDINE [Concomitant]
     Active Substance: SULFASALAZINE
     Indication: RHEUMATOID ARTHRITIS
     Route: 065

REACTIONS (3)
  - Pathogen resistance [Unknown]
  - Pneumonia [Recovering/Resolving]
  - Mycobacterium fortuitum infection [Recovering/Resolving]
